FAERS Safety Report 25800919 (Version 1)
Quarter: 2025Q3

REPORT INFORMATION
  Report Type: Report from Study
  Country: CA (occurrence: CA)
  Receive Date: 20250915
  Receipt Date: 20250915
  Transmission Date: 20251021
  Serious: Yes (Other)
  Sender: TAKEDA
  Company Number: CA-TAKEDA-2025TUS080012

PATIENT
  Sex: Male

DRUGS (6)
  1. VEDOLIZUMAB [Suspect]
     Active Substance: VEDOLIZUMAB
     Indication: Colitis ulcerative
  2. PREDNISONE [Concomitant]
     Active Substance: PREDNISONE
  3. MESALAMINE [Concomitant]
     Active Substance: MESALAMINE
  4. SYMBICORT [Concomitant]
     Active Substance: BUDESONIDE\FORMOTEROL FUMARATE DIHYDRATE
  5. Salofalk [Concomitant]
  6. TESTOSTERONE [Concomitant]
     Active Substance: TESTOSTERONE
     Dosage: 100 MILLIGRAM, 1/WEEK

REACTIONS (1)
  - Colitis ulcerative [Not Recovered/Not Resolved]
